FAERS Safety Report 21348835 (Version 2)
Quarter: 2022Q3

REPORT INFORMATION
  Report Type: Report from Study
  Country: BD (occurrence: BD)
  Receive Date: 20220919
  Receipt Date: 20220923
  Transmission Date: 20221026
  Serious: Yes (Death, Hospitalization)
  Sender: FDA-Public Use
  Company Number: BD-NOVARTISPH-NVSC2022BD210652

PATIENT
  Age: 46 Year
  Sex: Male
  Weight: 64 kg

DRUGS (1)
  1. CYCLOSPORINE [Suspect]
     Active Substance: CYCLOSPORINE
     Indication: Aplastic anaemia
     Dosage: 100 MG, BID
     Route: 048
     Dates: start: 20220629, end: 20220829

REACTIONS (2)
  - Respiratory failure [Fatal]
  - Off label use [Recovered/Resolved]

NARRATIVE: CASE EVENT DATE: 20220629
